FAERS Safety Report 9076846 (Version 1)
Quarter: 2013Q1

REPORT INFORMATION
  Report Type: Report from Study
  Country: US (occurrence: US)
  Receive Date: 20130129
  Receipt Date: 20130129
  Transmission Date: 20140127
  Serious: No
  Sender: FDA-Public Use
  Company Number: US-ABBOTT-12P-163-0946323-00

PATIENT
  Age: 52 Year
  Sex: Female

DRUGS (3)
  1. HUMIRA 40 MG/0.8 ML PEN [Suspect]
     Indication: PSORIATIC ARTHROPATHY
     Dosage: 40 MG DOSE ONLY
     Dates: start: 20120506
  2. OXYCONTIN SR [Concomitant]
     Indication: PRODUCT USED FOR UNKNOWN INDICATION
  3. PERCOCET [Concomitant]
     Indication: BREAKTHROUGH PAIN
     Dosage: THREE TIMES DAILY AS NEEDED

REACTIONS (1)
  - Drug ineffective [Not Recovered/Not Resolved]
